FAERS Safety Report 4691884-0 (Version None)
Quarter: 2005Q2

REPORT INFORMATION
  Report Type: 
  Country: None (occurrence: None)
  Receive Date: 20050615
  Receipt Date: 20050615
  Transmission Date: 20051028
  Serious: Yes (Other)
  Sender: FDA-Public Use
  Company Number: None

PATIENT
  Age: 41 Year
  Sex: Female

DRUGS (1)
  1. DESMORPRESSIN NASAL SPR 5 ML 0.01% [Suspect]
     Indication: ENURESIS
     Dosage: USE AS DIRECTED (PT STATES ONE SPRAY DIALY NASALLY)
     Route: 045
     Dates: start: 20050608, end: 20050610

REACTIONS (3)
  - DEVICE FAILURE [None]
  - DRUG DOSE OMISSION [None]
  - PHARMACEUTICAL PRODUCT COMPLAINT [None]
